FAERS Safety Report 4546361-4 (Version None)
Quarter: 2005Q1

REPORT INFORMATION
  Report Type: 
  Country: None (occurrence: None)
  Receive Date: 20050103
  Receipt Date: 20041222
  Transmission Date: 20050727
  Serious: Yes (Hospitalization)
  Sender: FDA-Public Use
  Company Number: 2004119766

PATIENT
  Age: 67 Year
  Sex: Male

DRUGS (6)
  1. CARDURA [Suspect]
     Indication: ILL-DEFINED DISORDER
     Dosage: 4 MG, ORAL
     Route: 048
     Dates: start: 20040430
  2. ALPRAZOLAM [Concomitant]
  3. RANITIDINE HYDROCHLORIDE [Concomitant]
  4. PANCRELIPASE (PANCRELIPASE) [Concomitant]
  5. ENALAPRIL MALEATE [Concomitant]
  6. MESALAMINE [Concomitant]

REACTIONS (4)
  - BLOOD PRESSURE INCREASED [None]
  - BLOOD SODIUM DECREASED [None]
  - DIZZINESS [None]
  - FEELING ABNORMAL [None]
